FAERS Safety Report 7875726-8 (Version None)
Quarter: 2011Q4

REPORT INFORMATION
  Report Type: 
  Country: None (occurrence: None)
  Receive Date: 20111031
  Receipt Date: 20111021
  Transmission Date: 20120403
  Serious: Yes (Hospitalization)
  Sender: FDA-Public Use
  Company Number: US-BAYER-2011-028370

PATIENT
  Age: 24 Year
  Sex: Female
  Weight: 74 kg

DRUGS (2)
  1. YAZ [Suspect]
     Indication: CONTRACEPTION
     Dosage: UNK
     Dates: start: 20060701, end: 20070101
  2. YASMIN [Suspect]
     Indication: CONTRACEPTION
     Dosage: UNK
     Dates: start: 20070201, end: 20080401

REACTIONS (9)
  - WEIGHT INCREASED [None]
  - ABDOMINAL DISTENSION [None]
  - CHOLELITHIASIS [None]
  - PAIN [None]
  - DIARRHOEA [None]
  - GALLBLADDER INJURY [None]
  - GASTRIC DISORDER [None]
  - MUSCLE SPASMS [None]
  - INJURY [None]
